FAERS Safety Report 16955761 (Version 1)
Quarter: 2019Q4

REPORT INFORMATION
  Report Type: Spontaneous
  Country: IN (occurrence: IN)
  Receive Date: 20191024
  Receipt Date: 20191024
  Transmission Date: 20200122
  Serious: Yes (Other)
  Sender: FDA-Public Use
  Company Number: IN-ALKEM LABORATORIES LIMITED-IN-ALKEM-2019-08844

PATIENT
  Age: 43 Year
  Sex: Male

DRUGS (6)
  1. QUETIAPINE FUMARATE. [Suspect]
     Active Substance: QUETIAPINE FUMARATE
     Indication: MANIA
  2. QUETIAPINE FUMARATE. [Suspect]
     Active Substance: QUETIAPINE FUMARATE
     Indication: PSYCHOTIC SYMPTOM
  3. QUETIAPINE FUMARATE. [Suspect]
     Active Substance: QUETIAPINE FUMARATE
     Indication: BIPOLAR DISORDER
     Dosage: 600 MILLIGRAM IN TWO DIVIDED DOSES
     Route: 065
  4. DIVALPROATE SODIUM [Concomitant]
     Indication: PSYCHOTIC SYMPTOM
  5. DIVALPROATE SODIUM [Concomitant]
     Indication: BIPOLAR DISORDER
     Dosage: 1000 MILLIGRAM IN TWO DIVIDED DOSES
     Route: 065
  6. DIVALPROATE SODIUM [Concomitant]
     Indication: MANIA

REACTIONS (1)
  - Hypersensitivity vasculitis [Recovered/Resolved]
